FAERS Safety Report 21952356 (Version 1)
Quarter: 2023Q1

REPORT INFORMATION
  Report Type: Spontaneous
  Country: US (occurrence: US)
  Receive Date: 20230203
  Receipt Date: 20230203
  Transmission Date: 20230417
  Serious: Yes (Death, Other)
  Sender: FDA-Public Use
  Company Number: US-GILEAD-2023-0614774

PATIENT
  Age: 64 Year
  Sex: Male

DRUGS (2)
  1. VEKLURY [Suspect]
     Active Substance: REMDESIVIR
     Indication: COVID-19
     Dosage: UNK
     Route: 065
  2. DEXAMETHASONE [Suspect]
     Active Substance: DEXAMETHASONE
     Indication: COVID-19
     Dosage: UNK
     Route: 065

REACTIONS (14)
  - Acute respiratory failure [Fatal]
  - Pneumonia [Fatal]
  - COVID-19 [Fatal]
  - Organ failure [Unknown]
  - Rhinocerebral mucormycosis [Unknown]
  - Type 2 diabetes mellitus [Unknown]
  - Mechanical ventilation [Unknown]
  - Fungal infection [Unknown]
  - Pain [Unknown]
  - Agitation [Unknown]
  - Confusional state [Unknown]
  - Blood glucose increased [Unknown]
  - Infection [Unknown]
  - Abnormal behaviour [Unknown]
